FAERS Safety Report 17285471 (Version 2)
Quarter: 2020Q1

REPORT INFORMATION
  Report Type: Report from Study
  Country: US (occurrence: US)
  Receive Date: 20200117
  Receipt Date: 20200124
  Transmission Date: 20200409
  Serious: Yes (Death)
  Sender: FDA-Public Use
  Company Number: US-EXELIXIS-XL18420026683

PATIENT
  Age: 63 Year
  Sex: Female
  Weight: 51.52 kg

DRUGS (2)
  1. ATEZOLIZUMAB. [Suspect]
     Active Substance: ATEZOLIZUMAB
     Indication: ENDOMETRIAL CANCER
     Dosage: 1200 MG, Q3WEEKS
     Route: 042
     Dates: start: 20191022
  2. XL184 [Suspect]
     Active Substance: CABOZANTINIB
     Indication: ENDOMETRIAL CANCER
     Dosage: 40 MG, QD
     Route: 048
     Dates: start: 20191022

REACTIONS (1)
  - Malignant neoplasm progression [Fatal]

NARRATIVE: CASE EVENT DATE: 20200110
